FAERS Safety Report 17459990 (Version 2)
Quarter: 2020Q1

REPORT INFORMATION
  Report Type: Report from Study
  Country: US (occurrence: US)
  Receive Date: 20200226
  Receipt Date: 20200317
  Transmission Date: 20200409
  Serious: Yes (Other)
  Sender: FDA-Public Use
  Company Number: PHHY2018US052045

PATIENT
  Age: 53 Year
  Sex: Male

DRUGS (1)
  1. GILENYA [Suspect]
     Active Substance: FINGOLIMOD HYDROCHLORIDE
     Indication: MULTIPLE SCLEROSIS
     Dosage: , QD
     Route: 048

REACTIONS (5)
  - Upper respiratory tract infection [Recovered/Resolved]
  - Pain in extremity [Unknown]
  - Dyspnoea [Unknown]
  - Cough [Unknown]
  - Pyrexia [Unknown]

NARRATIVE: CASE EVENT DATE: 20180108
